FAERS Safety Report 17859167 (Version 1)
Quarter: 2020Q2

REPORT INFORMATION
  Report Type: Spontaneous
  Country: US (occurrence: US)
  Receive Date: 20200604
  Receipt Date: 20200604
  Transmission Date: 20200714
  Serious: No
  Sender: FDA-Public Use
  Company Number: US-009507513-2006USA001263

PATIENT
  Age: 25 Year
  Sex: Female
  Weight: 41.72 kg

DRUGS (1)
  1. NEXPLANON [Suspect]
     Active Substance: ETONOGESTREL
     Indication: VAGINAL HAEMORRHAGE
     Dosage: 1 ROD EVERY 3 YEARS, IN LEFT ARM
     Route: 059
     Dates: start: 20191010

REACTIONS (2)
  - Acne [Not Recovered/Not Resolved]
  - Product use in unapproved indication [Unknown]

NARRATIVE: CASE EVENT DATE: 20191010
